FAERS Safety Report 5460087-4 (Version None)
Quarter: 2007Q3

REPORT INFORMATION
  Report Type: 
  Country: None (occurrence: None)
  Receive Date: 20070820
  Receipt Date: 20070507
  Transmission Date: 20080115
  Serious: No
  Sender: FDA-Public Use
  Company Number: TPA2007A00954

PATIENT
  Sex: Male

DRUGS (6)
  1. ROZEREM [Suspect]
     Dosage: 8 MG, PER ORAL
     Route: 048
  2. RAZADYNE [Suspect]
  3. SEROQUEL [Concomitant]
  4. DEPAKOTE [Concomitant]
  5. ZYPREXA [Concomitant]
  6. LAMICTAL [Concomitant]

REACTIONS (2)
  - MEDICATION ERROR [None]
  - NO ADVERSE REACTION [None]
